FAERS Safety Report 15782714 (Version 1)
Quarter: 2018Q4

REPORT INFORMATION
  Report Type: Spontaneous
  Country: US (occurrence: US)
  Receive Date: 20181212
  Receipt Date: 20181212
  Transmission Date: 20190205
  Serious: Yes (Life-Threatening, Hospitalization, Disabling)
  Sender: FDA-Public Use
  Company Number: None

PATIENT
  Age: 17 Year
  Sex: Female
  Weight: 113.4 kg

DRUGS (5)
  1. VITAMIN D [Concomitant]
     Active Substance: CHOLECALCIFEROL
  2. GUMI MULTI-VITAMIN [Concomitant]
  3. DROSPIRENONE AND ETHINYL ESTRADIOL TABLETS [Suspect]
     Active Substance: DROSPIRENONE\ETHINYL ESTRADIOL
     Indication: ACNE
     Dosage: ?          OTHER STRENGTH:3MG/0.02MG;QUANTITY:28 TAB;OTHER FREQUENCY:1/DAY AT BEDTIME;?
     Route: 048
     Dates: start: 20180522, end: 20180927
  4. NATURAL VALLEY GUMMY VITAMINS FOR HAIR AND NAILS [Concomitant]
  5. ELIQUIS [Concomitant]
     Active Substance: APIXABAN

REACTIONS (3)
  - Pulmonary embolism [None]
  - Intracardiac pressure increased [None]
  - Cardiomegaly [None]

NARRATIVE: CASE EVENT DATE: 20181029
